FAERS Safety Report 11657729 (Version 1)
Quarter: 2015Q4

REPORT INFORMATION
  Report Type: Spontaneous
  Country: US (occurrence: US)
  Receive Date: 20151023
  Receipt Date: 20151023
  Transmission Date: 20160304
  Serious: No
  Sender: FDA-Public Use
  Company Number: US-ABBVIE-15P-163-1346910-00

PATIENT
  Age: 22 Year
  Sex: Female
  Weight: 59.93 kg

DRUGS (4)
  1. TRAMADOL. [Concomitant]
     Active Substance: TRAMADOL
     Indication: POLYCYSTIC OVARIES
  2. TRAMADOL. [Concomitant]
     Active Substance: TRAMADOL
     Indication: ABDOMINAL PAIN
  3. LUPRON DEPOT [Suspect]
     Active Substance: LEUPROLIDE ACETATE
     Indication: ENDOMETRIOSIS
     Route: 030
     Dates: start: 201012, end: 201105
  4. YAZ [Concomitant]
     Active Substance: DROSPIRENONE\ETHINYL ESTRADIOL
     Indication: CONTRACEPTION

REACTIONS (6)
  - Abdominal pain [Not Recovered/Not Resolved]
  - Vaginal haemorrhage [Recovered/Resolved]
  - Weight increased [Not Recovered/Not Resolved]
  - Vaginal haemorrhage [Not Recovered/Not Resolved]
  - Abdominal pain [Recovered/Resolved]
  - Dyspareunia [Not Recovered/Not Resolved]

NARRATIVE: CASE EVENT DATE: 201308
